FAERS Safety Report 6963276-2 (Version None)
Quarter: 2010Q3

REPORT INFORMATION
  Report Type: 
  Country: None (occurrence: None)
  Receive Date: 20100902
  Receipt Date: 20100819
  Transmission Date: 20110219
  Serious: No
  Sender: FDA-Public Use
  Company Number: US-JNJFOC-20100801144

PATIENT
  Sex: Male
  Weight: 104.33 kg

DRUGS (4)
  1. FENTANYL CITRATE [Suspect]
     Indication: PAIN
     Dosage: NDC# 0781-7244-55
     Route: 062
  2. FENTANYL CITRATE [Suspect]
     Dosage: NDC# 0781-7244-55
     Route: 062
  3. FENTANYL CITRATE [Suspect]
     Indication: BACK DISORDER
     Dosage: NDC# 0781-7244-55
     Route: 062
  4. FENTANYL CITRATE [Suspect]
     Dosage: NDC# 0781-7244-55
     Route: 062

REACTIONS (4)
  - PARAESTHESIA [None]
  - PRODUCT ADHESION ISSUE [None]
  - WITHDRAWAL SYNDROME [None]
  - WRONG TECHNIQUE IN DRUG USAGE PROCESS [None]
